FAERS Safety Report 6123379-1 (Version None)
Quarter: 2009Q1

REPORT INFORMATION
  Report Type: 
  Country: None (occurrence: None)
  Receive Date: 20090318
  Receipt Date: 20090304
  Transmission Date: 20090719
  Serious: No
  Sender: FDA-Public Use
  Company Number: US-JNJFOC-20090301615

PATIENT
  Sex: Male
  Weight: 35.38 kg

DRUGS (2)
  1. INVEGA [Suspect]
     Indication: IMPULSIVE BEHAVIOUR
     Route: 048
  2. INVEGA [Suspect]
     Indication: AGGRESSION
     Route: 048

REACTIONS (1)
  - WEIGHT INCREASED [None]
